FAERS Safety Report 8591980-1 (Version None)
Quarter: 2012Q3

REPORT INFORMATION
  Report Type: 
  Country: None (occurrence: None)
  Receive Date: 20120814
  Receipt Date: 20120806
  Transmission Date: 20120928
  Serious: No
  Sender: FDA-Public Use
  Company Number: DE-VERTEX PHARMACEUTICALS INC.-000000000000001388

PATIENT
  Sex: Male
  Weight: 73 kg

DRUGS (3)
  1. RIBAVIRINE [Concomitant]
     Indication: HEPATITIS C
     Route: 048
     Dates: start: 20120301
  2. INCIVO [Suspect]
     Indication: HEPATITIS C
     Dosage: DOSAGE FORM: TABLET
     Route: 048
     Dates: start: 20120301, end: 20120524
  3. PEGINTERFERON ALFA-2A [Concomitant]
     Indication: HEPATITIS C
     Route: 058
     Dates: start: 20120301

REACTIONS (5)
  - HAEMORRHOIDS [None]
  - ERYTHEMA [None]
  - LISTLESS [None]
  - PRURITUS [None]
  - FATIGUE [None]
